FAERS Safety Report 9724238 (Version 2)
Quarter: 2013Q4

REPORT INFORMATION
  Report Type: Report from Study
  Country: FR (occurrence: FR)
  Receive Date: 20131202
  Receipt Date: 20131202
  Transmission Date: 20140711
  Serious: Yes (Death, Other)
  Sender: FDA-Public Use
  Company Number: FR-SA-CAMP-1003049

PATIENT
  Age: 58 Year
  Sex: Female

DRUGS (4)
  1. CAMPATH [Suspect]
     Indication: CHRONIC LYMPHOCYTIC LEUKAEMIA
     Dosage: UNK
     Route: 058
     Dates: start: 20130422, end: 20130522
  2. CAMPATH [Suspect]
     Indication: CHRONIC LYMPHOCYTIC LEUKAEMIA
     Dosage: UNK
     Route: 065
     Dates: start: 20130626, end: 20130626
  3. BENDAMUSTINE [Concomitant]
     Dates: start: 20130710, end: 20130731
  4. DOXORUBICIN [Concomitant]
     Dates: start: 20130829

REACTIONS (6)
  - Death [Fatal]
  - Multi-organ failure [Unknown]
  - Drug ineffective [Unknown]
  - Pancytopenia [Unknown]
  - Infection [Unknown]
  - Septic shock [Unknown]
